FAERS Safety Report 19221521 (Version 4)
Quarter: 2021Q2

REPORT INFORMATION
  Report Type: Report from Study
  Country: DE (occurrence: DE)
  Receive Date: 20210505
  Receipt Date: 20210615
  Transmission Date: 20210717
  Serious: Yes (Hospitalization)
  Sender: FDA-Public Use
  Company Number: DE-VERTEX PHARMACEUTICALS-2021-006115

PATIENT
  Age: 10 Year
  Sex: Male
  Weight: 40 kg

DRUGS (21)
  1. MELATONIN [Concomitant]
     Active Substance: MELATONIN
     Dosage: 10 MG, QD (EVENING)
  2. CETIRIZINE [Concomitant]
     Active Substance: CETIRIZINE HYDROCHLORIDE
     Indication: SEASONAL ALLERGY
     Dosage: 10 MILLIGRAM, QD (EVENING)
  3. VX?445/VX?661/VX?770 [Suspect]
     Active Substance: ELEXACAFTOR\IVACAFTOR\TEZACAFTOR
     Indication: CYSTIC FIBROSIS
     Dosage: 2 TABLETS (100 MG ELEXACAFTOR/ 50 MG TEZACAFTOR/ 75 MG IVACAFTOR) AM 1 TABLET 150MG IVACAFTOR PM
     Route: 048
     Dates: start: 20210308
  4. NASONEX [Concomitant]
     Active Substance: MOMETASONE FUROATE
     Dosage: UNK, QD (MORNING)
  5. PROTAPHANE [Concomitant]
     Active Substance: INSULIN HUMAN
     Dosage: 30?18 (MORNING 30 IU, NOON 18 IU)
  6. SALBUTAMOL [Concomitant]
     Active Substance: ALBUTEROL
     Dosage: 6 DROPS WITH MUCOCLEAR
  7. VIANI [Concomitant]
     Active Substance: FLUTICASONE PROPIONATE\SALMETEROL XINAFOATE
     Dosage: UNK, BID (MORNING AND EVENING)
  8. MUCOCLEAR [SODIUM CHLORIDE] [Concomitant]
     Dosage: UNK, BID PLUS 6 DROPS SALBUTAMOL
  9. PULMOZYME [Concomitant]
     Active Substance: DORNASE ALFA
     Dosage: UNK, QD (NOON)
  10. NOVORAPID [Concomitant]
     Active Substance: INSULIN ASPART
     Dosage: 7 U AM, 3 U NOON, 4 U PM
  11. ADEK [Concomitant]
     Dosage: UNK, QD (NOON)
  12. CREON [Concomitant]
     Active Substance: PANCRELIPASE AMYLASE\PANCRELIPASE LIPASE\PANCRELIPASE PROTEASE
     Dosage: AS NEEDED
  13. CREON [Concomitant]
     Active Substance: PANCRELIPASE AMYLASE\PANCRELIPASE LIPASE\PANCRELIPASE PROTEASE
     Dosage: HIGHER DOSES
  14. FLUNARIZINE [Concomitant]
     Active Substance: FLUNARIZINE
     Dosage: 5 MILLIGRAM, QD (EVENING)
  15. PRUCALOPRIDE [Concomitant]
     Active Substance: PRUCALOPRIDE
     Dosage: UNK
     Dates: end: 202104
  16. MOVICOL PLAIN [Concomitant]
     Active Substance: POLYETHYLENE GLYCOL 3350\POTASSIUM CHLORIDE\SODIUM BICARBONATE\SODIUM CHLORIDE
     Dosage: UNK, BID (MORNING AND EVENING)
  17. LEVEMIR [Concomitant]
     Active Substance: INSULIN DETEMIR
     Dosage: 22 INTERNATIONAL UNIT, QD (EVENING)
  18. NORTASE [Concomitant]
     Dosage: UNK
     Dates: end: 202104
  19. MAGNESIUM [Concomitant]
     Active Substance: MAGNESIUM
     Dosage: UNK
     Dates: end: 202104
  20. URSOFALK [Concomitant]
     Active Substance: URSODIOL
     Dosage: UNK, BID (MORNING AND EVENING)
  21. OMEPRAZOLE. [Concomitant]
     Active Substance: OMEPRAZOLE
     Dosage: 20 MILLIGRAM, BID

REACTIONS (3)
  - General physical health deterioration [Recovered/Resolved]
  - Diabetes mellitus inadequate control [Recovered/Resolved]
  - Steatorrhoea [Recovered/Resolved]

NARRATIVE: CASE EVENT DATE: 20210413
